FAERS Safety Report 16041062 (Version 1)
Quarter: 2019Q1

REPORT INFORMATION
  Report Type: Spontaneous
  Country: US (occurrence: US)
  Receive Date: 20190306
  Receipt Date: 20190306
  Transmission Date: 20190418
  Serious: No
  Sender: FDA-Public Use
  Company Number: US-AKORN PHARMACEUTICALS-2018AKN01602

PATIENT
  Sex: Female

DRUGS (3)
  1. MYORISAN [Suspect]
     Active Substance: ISOTRETINOIN
     Indication: ACNE
     Dosage: 40 MG
     Dates: start: 20180915, end: 20181002
  2. MYORISAN [Suspect]
     Active Substance: ISOTRETINOIN
     Indication: ACNE
     Dosage: 20 MG
     Dates: start: 20180713, end: 20180806
  3. ISOTRETINOIN (AMNEAL) [Suspect]
     Active Substance: ISOTRETINOIN
     Indication: ACNE
     Dosage: 40 MG
     Dates: start: 20180807, end: 20180914

REACTIONS (3)
  - Epistaxis [Unknown]
  - Dry throat [Unknown]
  - Nasal dryness [Unknown]

NARRATIVE: CASE EVENT DATE: 2018
